FAERS Safety Report 14899845 (Version 1)
Quarter: 2018Q2

REPORT INFORMATION
  Report Type: Spontaneous
  Country: US (occurrence: US)
  Receive Date: 20180516
  Receipt Date: 20180516
  Transmission Date: 20180711
  Serious: Yes (Other)
  Sender: FDA-Public Use
  Company Number: US-SUN PHARMACEUTICAL INDUSTRIES LTD-2018US-172590

PATIENT
  Age: 14 Year
  Sex: Female

DRUGS (3)
  1. METHOTREXATE. [Suspect]
     Active Substance: METHOTREXATE
     Indication: OSTEOSARCOMA
     Dosage: UNK, HIGH DOSE
     Route: 065
  2. DOXORUBICIN [Concomitant]
     Active Substance: DOXORUBICIN
     Indication: OSTEOSARCOMA
     Dosage: UNK
     Route: 065
  3. CIS-PLATINUM [Concomitant]
     Active Substance: CISPLATIN
     Indication: OSTEOSARCOMA
     Dosage: UNK
     Route: 065

REACTIONS (1)
  - Inappropriate antidiuretic hormone secretion [Recovered/Resolved]
